FAERS Safety Report 9723250 (Version 1)
Quarter: 2013Q4

REPORT INFORMATION
  Report Type: Spontaneous
  Country: US (occurrence: US)
  Receive Date: 20131202
  Receipt Date: 20131202
  Transmission Date: 20140711
  Serious: Yes (Death, Hospitalization)
  Sender: FDA-Public Use
  Company Number: US-ACTELION-A-US2013-91717

PATIENT
  Age: 19 Year
  Sex: Female

DRUGS (6)
  1. TRACLEER [Suspect]
     Indication: PULMONARY ARTERIAL HYPERTENSION
     Dosage: UNK
     Route: 048
     Dates: start: 20130913, end: 20131108
  2. SILDENAFIL [Concomitant]
  3. COUMADIN [Concomitant]
  4. DIGOXIN [Concomitant]
  5. PROCARDIA [Concomitant]
  6. LASIX [Concomitant]

REACTIONS (1)
  - Cardiac failure [Fatal]
